FAERS Safety Report 10506872 (Version 1)
Quarter: 2014Q3

REPORT INFORMATION
  Report Type: Spontaneous
  Country: US (occurrence: None)
  Receive Date: 20140915
  Receipt Date: 20140915
  Transmission Date: 20150326
  Serious: Yes (Other)
  Sender: FDA-Public Use
  Company Number: 2014-US-004878

PATIENT
  Age: 28 Year
  Sex: Female
  Weight: 62.1 kg

DRUGS (3)
  1. XYREM [Suspect]
     Active Substance: SODIUM OXYBATE
     Indication: NARCOLEPSY
     Route: 048
     Dates: start: 201401, end: 2014
  2. ERYDACIN [Concomitant]
  3. XYREM [Suspect]
     Active Substance: SODIUM OXYBATE
     Indication: CATAPLEXY
     Route: 048
     Dates: start: 201401, end: 2014

REACTIONS (6)
  - Sleep apnoea syndrome [None]
  - Palpitations [None]
  - Nervousness [None]
  - Cataplexy [None]
  - Condition aggravated [None]
  - Anxiety [None]

NARRATIVE: CASE EVENT DATE: 201403
